FAERS Safety Report 7886915-0 (Version None)
Quarter: 2011Q4

REPORT INFORMATION
  Report Type: 
  Country: None (occurrence: None)
  Receive Date: 20111102
  Receipt Date: 20110712
  Transmission Date: 20120403
  Serious: No
  Sender: FDA-Public Use
  Company Number: US-AMGEN-USASP2011035386

PATIENT
  Sex: Female

DRUGS (2)
  1. ENBREL [Suspect]
     Indication: PSORIATIC ARTHROPATHY
     Dosage: 25 MG, QWK
     Dates: start: 20031001, end: 20110501
  2. ENBREL [Suspect]
     Indication: PSORIASIS

REACTIONS (6)
  - NAUSEA [None]
  - STAPHYLOCOCCAL INFECTION [None]
  - SINUSITIS [None]
  - PSORIATIC ARTHROPATHY [None]
  - VOMITING [None]
  - DIARRHOEA [None]
